FAERS Safety Report 10077152 (Version 1)
Quarter: 2014Q2

REPORT INFORMATION
  Report Type: Spontaneous
  Country: BR (occurrence: BR)
  Receive Date: 20140414
  Receipt Date: 20140414
  Transmission Date: 20141212
  Serious: Yes (Hospitalization, Other)
  Sender: FDA-Public Use
  Company Number: BR-009507513-1404BRA004706

PATIENT
  Age: 33 Year
  Sex: Female
  Weight: 77 kg

DRUGS (3)
  1. MERCILON [Suspect]
     Indication: CONTRACEPTION
     Dosage: 1 DF, QD
     Route: 048
  2. MERCILON [Suspect]
     Dosage: 1 DF, QD
     Route: 048
     Dates: start: 200803
  3. MERCILON [Suspect]
     Dosage: 1 DF, QD
     Route: 048
     Dates: start: 201101

REACTIONS (6)
  - Caesarean section [Recovered/Resolved]
  - Caesarean section [Recovered/Resolved]
  - Varicose vein operation [Recovered/Resolved]
  - Varicose vein [Unknown]
  - Drug dispensing error [Unknown]
  - Maternal exposure before pregnancy [Unknown]
